FAERS Safety Report 11854955 (Version 1)
Quarter: 2015Q4

REPORT INFORMATION
  Report Type: Spontaneous
  Country: US (occurrence: None)
  Receive Date: 20151218
  Receipt Date: 20151218
  Transmission Date: 20160305
  Serious: Yes (Other)
  Sender: FDA-Public Use
  Company Number: None

PATIENT
  Age: 75 Year
  Sex: Male

DRUGS (6)
  1. FERROUS SULFATE [Concomitant]
     Active Substance: FERROUS SULFATE\FERROUS SULFATE, DRIED
  2. CENTRUM [Concomitant]
     Active Substance: VITAMINS
  3. ASPIRIN-TRIN [Concomitant]
  4. NOXAFIL [Suspect]
     Active Substance: POSACONAZOLE
     Indication: IMMUNODEFICIENCY
     Route: 048
     Dates: start: 20150918, end: 20151217
  5. NOXAFIL [Suspect]
     Active Substance: POSACONAZOLE
     Indication: LUNG TRANSPLANT
     Route: 048
     Dates: start: 20150918, end: 20151217
  6. GAMMAGARD [Concomitant]
     Active Substance: HUMAN IMMUNOGLOBULIN G

REACTIONS (3)
  - Hepatic enzyme increased [None]
  - Therapy cessation [None]
  - Insomnia [None]

NARRATIVE: CASE EVENT DATE: 20151217
